FAERS Safety Report 8199096-3 (Version None)
Quarter: 2012Q1

REPORT INFORMATION
  Report Type: 
  Country: None (occurrence: None)
  Receive Date: 20120309
  Receipt Date: 20120228
  Transmission Date: 20120608
  Serious: Yes (Death)
  Sender: FDA-Public Use
  Company Number: FR-AMGEN-QUU369465

PATIENT
  Sex: Female

DRUGS (22)
  1. CYCLOSPORINE [Concomitant]
     Dosage: 100 MG, BID
     Route: 064
     Dates: start: 20081022, end: 20081217
  2. FUROSEMIDE [Concomitant]
     Dosage: 100 MG, BID
     Route: 064
     Dates: start: 20080613, end: 20081215
  3. UN-ALFA [Concomitant]
     Dosage: 5 MUG, QD
     Route: 064
     Dates: start: 20080704, end: 20081017
  4. VENOFER [Concomitant]
     Dosage: 100 MUG, 2 TIMES/WK
     Route: 064
     Dates: start: 20080613, end: 20081016
  5. ERYTHROMYCIN [Concomitant]
     Dosage: UNK UNK, UNK
     Route: 064
     Dates: start: 20080829, end: 20080916
  6. SODIUM POLYSTYRENE SULFONATE [Concomitant]
     Dosage: UNK UNK, QD
     Route: 064
     Dates: start: 20080613, end: 20081115
  7. TIXOCORTOL PIVALATE [Concomitant]
     Dosage: UNK UNK, BID
     Route: 064
     Dates: start: 20081031, end: 20081107
  8. CEFPODOXIME PROXETIL [Concomitant]
     Dosage: 100 MG, BID
     Route: 064
     Dates: start: 20080711, end: 20081117
  9. ARANESP [Suspect]
     Dosage: 60 MUG, QWK
     Route: 064
     Dates: start: 20080727, end: 20080928
  10. ARANESP [Suspect]
     Dosage: 80 PG, 2 TIMES/WK
     Route: 064
     Dates: start: 20080929, end: 20081217
  11. ESOMEPRAZOLE SODIUM [Concomitant]
     Dosage: 40 MG, QD
     Route: 064
     Dates: start: 20080613, end: 20081217
  12. ZINC SULFATE [Concomitant]
     Dosage: 15 MG, QD
     Route: 064
     Dates: start: 20080829, end: 20080916
  13. ISOTRETINOIN [Concomitant]
     Dosage: UNK UNK, UNK
     Route: 064
     Dates: start: 20080829, end: 20080916
  14. FOLIC ACID [Concomitant]
     Dosage: 56 MG, BID
     Route: 064
     Dates: start: 20080810, end: 20081217
  15. RENAGEL [Concomitant]
     Dosage: 800 MG, TID
     Route: 064
     Dates: start: 20080828, end: 20081215
  16. HYDROXYZINE HCL [Concomitant]
     Dosage: 25 MG, QD
     Route: 064
     Dates: start: 20080818, end: 20081217
  17. VENOFER [Concomitant]
     Dosage: 100 MUG, 3 TIMES/WK
     Route: 064
     Dates: start: 20081017, end: 20081214
  18. ACETYLCYSTEINE [Concomitant]
     Dosage: 200 MG, BID
     Route: 064
     Dates: start: 20080711, end: 20081011
  19. ACETYLCYSTEINE [Concomitant]
     Dosage: UNK UNK, BID
     Route: 064
     Dates: start: 20081107, end: 20081110
  20. AZATHIOPRINE [Concomitant]
     Dosage: 75 MG, BID
     Route: 064
     Dates: start: 20080613, end: 20080916
  21. VENOFER [Concomitant]
     Dosage: 100 MUG, 2 TIMES/WK
     Route: 064
     Dates: start: 20081215, end: 20081217
  22. AMLODIPINE BESYLATE [Concomitant]
     Dosage: UNK UNK, UNK
     Route: 064
     Dates: start: 20080620, end: 20081215

REACTIONS (1)
  - STILLBIRTH [None]
